FAERS Safety Report 8214778-2 (Version None)
Quarter: 2012Q1

REPORT INFORMATION
  Report Type: 
  Country: None (occurrence: None)
  Receive Date: 20120316
  Receipt Date: 20120305
  Transmission Date: 20120608
  Serious: Yes (Hospitalization)
  Sender: FDA-Public Use
  Company Number: FR-VERTEX PHARMACEUTICALS INC.-000000000000000322

PATIENT
  Sex: Female

DRUGS (9)
  1. COPEGUS [Concomitant]
     Dosage: DOSAGE FORM: UNSPECIFIED
     Route: 048
     Dates: start: 20111219
  2. BISOPROLOL FUMARATE [Concomitant]
  3. COPEGUS [Concomitant]
     Dosage: DOSAGE FORM: UNSPECIFIED
     Route: 048
     Dates: start: 20111001, end: 20111219
  4. PEGASYS [Concomitant]
     Indication: HEPATITIS C
     Route: 058
     Dates: start: 20110926
  5. INCIVO (TELAPREVIR) [Suspect]
     Indication: HEPATITIS C
     Dosage: DOSAGE FORM: TABLET
     Route: 048
     Dates: start: 20110926, end: 20111220
  6. PEGASYS [Concomitant]
     Route: 058
     Dates: start: 20111227
  7. COPEGUS [Concomitant]
     Indication: HEPATITIS C
     Dosage: DOSAGE FORM: UNSPECIFIED
     Route: 048
     Dates: start: 20110926, end: 20111001
  8. IRBESARTAN [Concomitant]
     Dosage: 150MG/12.5G
  9. ACETAMINOPHEN [Concomitant]

REACTIONS (2)
  - PANCYTOPENIA [None]
  - ANAEMIA [None]
